FAERS Safety Report 18627707 (Version 1)
Quarter: 2020Q4

REPORT INFORMATION
  Report Type: Report from Study
  Country: RO (occurrence: RO)
  Receive Date: 20201217
  Receipt Date: 20201217
  Transmission Date: 20210114
  Serious: Yes (Hospitalization)
  Sender: FDA-Public Use
  Company Number: RO-CELGENEUS-ROU-20201203465

PATIENT
  Age: 67 Year
  Sex: Female
  Weight: 67.28 kg

DRUGS (3)
  1. MABRON [Concomitant]
     Indication: ANALGESIC THERAPY
     Dosage: 100 MILLIGRAM
     Route: 041
     Dates: start: 20190509, end: 20190524
  2. GLASDEGIB [Suspect]
     Active Substance: GLASDEGIB
     Indication: ACUTE MYELOID LEUKAEMIA
     Route: 048
     Dates: start: 20190417, end: 20190515
  3. AZACITIDINE. [Suspect]
     Active Substance: AZACITIDINE
     Indication: ACUTE MYELOID LEUKAEMIA
     Dosage: 125 MILLIGRAM
     Route: 058
     Dates: start: 20190417, end: 20190423

REACTIONS (1)
  - Complication associated with device [Recovered/Resolved]

NARRATIVE: CASE EVENT DATE: 20190508
